FAERS Safety Report 12550951 (Version 2)
Quarter: 2016Q3

REPORT INFORMATION
  Report Type: Report from Study
  Country: IN (occurrence: IN)
  Receive Date: 20160712
  Receipt Date: 20160719
  Transmission Date: 20161109
  Serious: Yes (Hospitalization)
  Sender: FDA-Public Use
  Company Number: IN-ROCHE-1790697

PATIENT
  Age: 32 Year
  Sex: Male

DRUGS (10)
  1. FERROUS FUMARATE/FOLIC ACID [Concomitant]
     Active Substance: FERROUS FUMARATE\FOLIC ACID
     Dosage: 1 CAPSULE 2 TIMES A DAY
     Route: 065
     Dates: start: 20160325
  2. SEPTRAN (INDIA) [Concomitant]
     Dosage: 1 TABLET ALTERNATE DAY
     Route: 065
     Dates: start: 20160325
  3. VALGANCICLOVIR. [Concomitant]
     Active Substance: VALGANCICLOVIR
     Dosage: ALTERNATE DAY
     Route: 065
     Dates: start: 20160325
  4. CELLCEPT [Suspect]
     Active Substance: MYCOPHENOLATE MOFETIL\MYCOPHENOLATE MOFETIL HYDROCHLORIDE
     Indication: RENAL TRANSPLANT
     Dosage: 1 GM TWICE DAILY
     Route: 048
     Dates: start: 20160309, end: 20160621
  5. PANTOPRAZOLE [Concomitant]
     Active Substance: PANTOPRAZOLE SODIUM
     Route: 048
     Dates: start: 20160325
  6. OMNACORTIL [Concomitant]
     Active Substance: PREDNISOLONE
     Route: 048
     Dates: start: 20160325
  7. METOPROLOL. [Concomitant]
     Active Substance: METOPROLOL
     Route: 065
     Dates: start: 20160325
  8. AUTRIN (INDIA) [Concomitant]
     Dosage: 1 CAPSULE
     Route: 065
     Dates: start: 20160325
  9. PARACETAMOL [Concomitant]
     Active Substance: ACETAMINOPHEN
     Dosage: 1 TAB IF REQUIRED
     Route: 048
     Dates: start: 20160325
  10. ARKAMINE [Concomitant]
     Route: 048
     Dates: start: 20160325

REACTIONS (3)
  - Nephrectomy [Unknown]
  - Fungal infection [Recovering/Resolving]
  - Urinary tract infection [Unknown]

NARRATIVE: CASE EVENT DATE: 20160621
